FAERS Safety Report 23397882 (Version 3)
Quarter: 2024Q1

REPORT INFORMATION
  Report Type: Report from Study
  Country: US (occurrence: US)
  Receive Date: 20240112
  Receipt Date: 20240308
  Transmission Date: 20240410
  Serious: Yes (Other)
  Sender: FDA-Public Use
  Company Number: US-ACADIA PHARMACEUTICALS INC.-ACA-2023-PIM-006000

PATIENT
  Sex: Female

DRUGS (7)
  1. NUPLAZID [Suspect]
     Active Substance: PIMAVANSERIN TARTRATE
     Indication: Parkinson^s disease
     Dosage: 34 MILLIGRAM, QD
     Route: 048
     Dates: start: 202109
  2. FENOFIBRATE [Concomitant]
     Active Substance: FENOFIBRATE
     Dosage: UNKNOWN
     Route: 065
     Dates: start: 20210410
  3. METFORMIN [Concomitant]
     Active Substance: METFORMIN HYDROCHLORIDE
     Dosage: UNKNOWN
     Route: 065
     Dates: start: 20210603
  4. PRAMIPEXOLE [Concomitant]
     Active Substance: PRAMIPEXOLE\PRAMIPEXOLE DIHYDROCHLORIDE
     Dosage: UNKNOWN
     Route: 065
     Dates: start: 20220225
  5. JARDIANCE [Concomitant]
     Active Substance: EMPAGLIFLOZIN
     Dosage: UNKNOWN
     Route: 065
     Dates: start: 20210506
  6. RISPERIDONE [Concomitant]
     Active Substance: RISPERIDONE
     Dosage: UNKNOWN
     Route: 065
     Dates: start: 20231215
  7. AMANTADINE [Concomitant]
     Active Substance: AMANTADINE
     Dosage: UNKNOWN
     Route: 065
     Dates: start: 20230201

REACTIONS (4)
  - Metastatic uterine cancer [Unknown]
  - Uterine cancer [Unknown]
  - Schizophrenia [Not Recovered/Not Resolved]
  - Hospice care [Unknown]

NARRATIVE: CASE EVENT DATE: 20170101
